FAERS Safety Report 10310407 (Version 2)
Quarter: 2014Q3

REPORT INFORMATION
  Report Type: Spontaneous
  Country: US (occurrence: None)
  Receive Date: 20140715
  Receipt Date: 20140721
  Transmission Date: 20150326
  Serious: Yes (Death, Hospitalization, Other)
  Sender: FDA-Public Use
  Company Number: ADR-2014-01222

PATIENT
  Age: 48 Year
  Sex: Female

DRUGS (2)
  1. LIORESAL [Suspect]
     Active Substance: BACLOFEN
     Indication: MUSCLE SPASTICITY
     Dosage: 99.97 MCG/DAY
  2. UNKNOWN [Suspect]
     Active Substance: UNSPECIFIED INGREDIENT
     Dosage: 5 PILLS A DAY

REACTIONS (4)
  - Mental status changes [None]
  - Depressed level of consciousness [None]
  - Pulmonary embolism [None]
  - Unevaluable event [None]
